FAERS Safety Report 5922482-6 (Version None)
Quarter: 2008Q4

REPORT INFORMATION
  Report Type: 
  Country: None (occurrence: None)
  Receive Date: 20081017
  Receipt Date: 20081010
  Transmission Date: 20090506
  Serious: Yes (Death)
  Sender: FDA-Public Use
  Company Number: MX-NOVOPROD-280331

PATIENT
  Age: 64 Year
  Sex: Female
  Weight: 67 kg

DRUGS (3)
  1. LEVEMIR [Suspect]
     Indication: DIABETES MELLITUS
     Dosage: 20 IU, QD
  2. ASPIRIN [Concomitant]
     Dosage: 1 UNK, QD
  3. METFORMIN HYDROCHLORIDE [Concomitant]

REACTIONS (1)
  - DEATH [None]
